FAERS Safety Report 8171893-X (Version None)
Quarter: 2012Q1

REPORT INFORMATION
  Report Type: 
  Country: None (occurrence: None)
  Receive Date: 20120228
  Receipt Date: 20120216
  Transmission Date: 20120608
  Serious: Yes (Other)
  Sender: FDA-Public Use
  Company Number: FR-CELGENEUS-056-21880-12020766

PATIENT
  Sex: Male

DRUGS (19)
  1. TRIMETHOPRIM [Concomitant]
     Route: 065
     Dates: start: 20111110
  2. VALACYCLOVIR HYDROCHLORIDE [Concomitant]
     Route: 065
     Dates: start: 20111110
  3. ELOTUZUMAB [Suspect]
     Indication: MULTIPLE MYELOMA
     Dosage: 760 MILLIGRAM
     Route: 041
     Dates: start: 20111213, end: 20120131
  4. LYRICA [Concomitant]
     Route: 065
     Dates: start: 20111129
  5. OXYCODONE HCL [Concomitant]
     Route: 065
     Dates: start: 20111129
  6. POTASSIUM CHLORIDE [Concomitant]
     Route: 065
     Dates: start: 20111213
  7. PHENOXYMETHYL PENICILLIN [Concomitant]
     Route: 065
     Dates: start: 20111110
  8. TRANSIPEG [Concomitant]
     Route: 065
     Dates: start: 20111213
  9. OXYCONTIN [Concomitant]
     Route: 065
     Dates: start: 20111129
  10. DEXAMETHASONE [Suspect]
     Dosage: 8 MILLIGRAM
     Route: 041
     Dates: start: 20111213, end: 20120130
  11. ECONAZOL [Concomitant]
     Route: 065
     Dates: start: 20111210
  12. DEXAMETHASONE [Suspect]
     Indication: MULTIPLE MYELOMA
     Dosage: 28 MILLIGRAM
     Route: 048
     Dates: start: 20111213, end: 20120130
  13. DILTIAZEM HCL [Concomitant]
     Route: 065
     Dates: start: 20111129
  14. PREVISCAN [Concomitant]
     Route: 065
     Dates: start: 20111129
  15. REVLIMID [Suspect]
     Indication: MULTIPLE MYELOMA
     Dosage: 25 MILLIGRAM
     Route: 048
     Dates: start: 20111213, end: 20120130
  16. BUMETANIDE [Concomitant]
     Route: 065
     Dates: start: 20111129
  17. ALBUTEROL [Concomitant]
     Route: 065
     Dates: start: 20111205
  18. LEUCOVORIN CALCIUM [Concomitant]
     Route: 065
     Dates: start: 20111110
  19. IMOVANE [Concomitant]
     Route: 065
     Dates: start: 20111129

REACTIONS (2)
  - CHRONIC LYMPHOCYTIC LEUKAEMIA [None]
  - OVERDOSE [None]
